FAERS Safety Report 7386650-1 (Version None)
Quarter: 2011Q1

REPORT INFORMATION
  Report Type: 
  Country: None (occurrence: None)
  Receive Date: 20110329
  Receipt Date: 20110329
  Transmission Date: 20110831
  Serious: Yes (Hospitalization)
  Sender: FDA-Public Use
  Company Number: None

PATIENT
  Age: 56 Year
  Weight: 78.4 kg

DRUGS (15)
  1. COMPAZINE [Concomitant]
  2. MEGACE [Concomitant]
  3. RAD001 [Concomitant]
  4. IBUPROFEN [Concomitant]
  5. OMEPRAZOLE [Concomitant]
  6. MORPHINE [Concomitant]
  7. AVASTIN [Suspect]
     Indication: COLON CANCER
     Dosage: 416 MG
     Dates: start: 20110214, end: 20110310
  8. TAMSULOSIN [Concomitant]
  9. ZOFRAN [Concomitant]
  10. ATIVAN [Concomitant]
  11. SIMIVASTIN [Concomitant]
  12. LORTAB [Concomitant]
  13. ACETAMINOPHEN [Concomitant]
  14. FOLFOX/AVASTIN [Concomitant]
  15. ELMA CREAM [Concomitant]

REACTIONS (2)
  - EMBOLISM ARTERIAL [None]
  - PULMONARY EMBOLISM [None]
